FAERS Safety Report 8876161 (Version 2)
Quarter: 2014Q2

REPORT INFORMATION
  Report Type: Spontaneous
  Country: IT (occurrence: IT)
  Receive Date: 20121030
  Receipt Date: 20131120
  Transmission Date: 20141212
  Serious: Yes (Other)
  Sender: FDA-Public Use
  Company Number: IT-TEVA-366154ISR

PATIENT
  Age: 55 Year
  Sex: Female
  Weight: 54 kg

DRUGS (2)
  1. CARBOPLATINO TEVA [Suspect]
     Indication: OVARIAN CANCER
     Dosage: 425 MILLIGRAM DAILY;
     Route: 041
     Dates: start: 20121016, end: 20121016
  2. PACLITAXEL ACTAVIS [Concomitant]
     Indication: OVARIAN CANCER
     Dosage: 120 MILLIGRAM DAILY;
     Route: 041
     Dates: start: 20121016, end: 20121016

REACTIONS (3)
  - Chest pain [Recovered/Resolved]
  - Erythema [Recovered/Resolved]
  - Tremor [Recovered/Resolved]
